FAERS Safety Report 15373909 (Version 1)
Quarter: 2018Q3

REPORT INFORMATION
  Report Type: Spontaneous
  Country: US (occurrence: US)
  Receive Date: 20180905
  Receipt Date: 20180905
  Transmission Date: 20181010
  Serious: Yes (Death)
  Sender: FDA-Public Use
  Company Number: None

PATIENT
  Age: 73 Year
  Sex: Female

DRUGS (1)
  1. TACROLIMUS. [Suspect]
     Active Substance: TACROLIMUS
     Indication: HEART TRANSPLANT
     Dosage: ?          OTHER FREQUENCY:2 EVERY 12HRS;?
     Route: 048
     Dates: start: 20150210

REACTIONS (1)
  - Death [None]

NARRATIVE: CASE EVENT DATE: 20180905
